FAERS Safety Report 16897857 (Version 2)
Quarter: 2019Q4

REPORT INFORMATION
  Report Type: Spontaneous
  Country: US (occurrence: US)
  Receive Date: 20191009
  Receipt Date: 20191211
  Transmission Date: 20200122
  Serious: No
  Sender: FDA-Public Use
  Company Number: US-BEH-2019107658

PATIENT
  Sex: Female

DRUGS (28)
  1. CITALOPRAM HYDROBROMIDE. [Concomitant]
     Active Substance: CITALOPRAM HYDROBROMIDE
     Indication: DEPRESSION
  2. BACLOFEN. [Concomitant]
     Active Substance: BACLOFEN
  3. HYDROXYZINE [Concomitant]
     Active Substance: HYDROXYZINE HYDROCHLORIDE
  4. ROPINIROL [Concomitant]
     Active Substance: ROPINIROLE
     Dosage: 5 MILLIGRAM
     Route: 065
  5. VITAMIN D3 [Concomitant]
     Active Substance: CHOLECALCIFEROL
  6. BACTRIM [Concomitant]
     Active Substance: SULFAMETHOXAZOLE\TRIMETHOPRIM
  7. IPRATROPIUM [Concomitant]
     Active Substance: IPRATROPIUM
  8. TRIAMCINOLON [TRIAMCINOLONE ACETONIDE] [Concomitant]
  9. CITALOPRAM HYDROBROMIDE. [Concomitant]
     Active Substance: CITALOPRAM HYDROBROMIDE
  10. CITALOPRAM HYDROBROMIDE. [Concomitant]
     Active Substance: CITALOPRAM HYDROBROMIDE
     Indication: DEPRESSION
  11. LEVOTHYROXIN [Concomitant]
     Active Substance: LEVOTHYROXINE
  12. MAGNESIUM [Concomitant]
     Active Substance: MAGNESIUM
     Dosage: 500 MILLIGRAM
     Route: 065
  13. SPIRIVA [Concomitant]
     Active Substance: TIOTROPIUM BROMIDE MONOHYDRATE
     Dosage: 18 MICROGRAM
     Route: 065
  14. GABAPENTIN. [Concomitant]
     Active Substance: GABAPENTIN
  15. VENTOLIN HFA [Concomitant]
     Active Substance: ALBUTEROL SULFATE
  16. LEVAQUIN [Concomitant]
     Active Substance: LEVOFLOXACIN
  17. MONTELUKAST [Concomitant]
     Active Substance: MONTELUKAST SODIUM
     Dosage: 10 MILLIGRAM
     Route: 065
  18. MULTIVITAMINS [VITAMINS NOS] [Concomitant]
     Active Substance: VITAMINS
  19. SARNA [CAMPHOR;MENTHOL] [Concomitant]
  20. PRIVIGEN [Suspect]
     Active Substance: HUMAN IMMUNOGLOBULIN G
     Indication: GASTROOESOPHAGEAL REFLUX DISEASE
     Dosage: 25 GRAM, QMT (EVERY 4 WEEKS)
     Route: 042
     Dates: start: 201909
  21. BUDESONIDE. [Concomitant]
     Active Substance: BUDESONIDE
     Dosage: UNK
  22. BEVESPI AEROSPHERE [Concomitant]
     Active Substance: FORMOTEROL FUMARATE\GLYCOPYRROLATE
  23. FLEXERIL [CEFIXIME] [Concomitant]
     Active Substance: CEFIXIME
  24. CETAPHIL [CETYL ALCOHOL;PROPYLENE GLYCOL;SODIUM LAURYL SULFATE;STEARYL [Concomitant]
  25. PANTOPRAZOLE [Concomitant]
     Active Substance: PANTOPRAZOLE
     Dosage: 40 MILLIGRAM
     Route: 065
  26. PREDNISONE. [Concomitant]
     Active Substance: PREDNISONE
  27. AZITHROMYCIN ANHYDROUS. [Concomitant]
     Active Substance: AZITHROMYCIN ANHYDROUS
     Dosage: 600 MILLIGRAM
     Route: 065
  28. ZYRTEC [Concomitant]
     Active Substance: CETIRIZINE HYDROCHLORIDE
     Dosage: 10 MILLIGRAM
     Route: 065

REACTIONS (14)
  - Depression [Unknown]
  - Fatigue [Recovered/Resolved]
  - Scratch [Unknown]
  - Perivascular dermatitis [Unknown]
  - Skin haemorrhage [Unknown]
  - Fatigue [Unknown]
  - Back pain [Unknown]
  - Pruritus [Unknown]
  - Haematoma [Unknown]
  - Decreased appetite [Unknown]
  - No adverse event [Unknown]
  - Nausea [Unknown]
  - Rectal polyp [Unknown]
  - Product use in unapproved indication [Unknown]
